FAERS Safety Report 16533786 (Version 1)
Quarter: 2019Q3

REPORT INFORMATION
  Report Type: Spontaneous
  Country: NL (occurrence: GB)
  Receive Date: 20190705
  Receipt Date: 20190705
  Transmission Date: 20191004
  Serious: Yes (Disabling)
  Sender: FDA-Public Use
  Company Number: GB-FRESENIUS KABI-FK201907127

PATIENT
  Age: 62 Year
  Sex: Female
  Weight: 120 kg

DRUGS (2)
  1. DIABETES MEDICATION [Concomitant]
     Active Substance: UNSPECIFIED INGREDIENT
     Indication: DIABETES MELLITUS
  2. PROPOFOL (MANUFACTURER UNKNOWN) [Suspect]
     Active Substance: PROPOFOL
     Indication: GENERAL ANAESTHESIA
     Route: 065

REACTIONS (4)
  - Condition aggravated [Unknown]
  - Eyelid ptosis [Not Recovered/Not Resolved]
  - Asthenia [Unknown]
  - Fatigue [Unknown]
